FAERS Safety Report 7084251-6 (Version None)
Quarter: 2010Q4

REPORT INFORMATION
  Report Type: 
  Country: None (occurrence: None)
  Receive Date: 20101104
  Receipt Date: 20101102
  Transmission Date: 20110411
  Serious: Yes (Life-Threatening, Congenital Anomaly, Other)
  Sender: FDA-Public Use
  Company Number: US-PFIZER INC-2007095324

PATIENT
  Sex: Male
  Weight: 4 kg

DRUGS (5)
  1. ZOLOFT [Suspect]
     Indication: ANXIETY
     Dosage: 100 AND 150 MG
     Route: 064
     Dates: start: 20010201
  2. ZOLOFT [Suspect]
     Indication: DEPRESSION
     Dosage: 25 MG, AT BED TIME
  3. ZOLOFT [Suspect]
     Indication: OBSESSIVE-COMPULSIVE DISORDER
     Dosage: 50 MG, 1X/DAY
  4. ACETAMINOPHEN [Concomitant]
     Dosage: UNK
  5. PRENATAL VITAMINS [Concomitant]
     Dosage: UNK

REACTIONS (13)
  - ASTHMA [None]
  - COGNITIVE DISORDER [None]
  - COLLAPSE OF LUNG [None]
  - DEVELOPMENTAL DELAY [None]
  - DRUG EXPOSURE DURING PREGNANCY [None]
  - FAILURE TO THRIVE [None]
  - FEEDING DISORDER NEONATAL [None]
  - FOOD ALLERGY [None]
  - GASTRIC DISORDER [None]
  - NEONATAL RESPIRATORY DISTRESS SYNDROME [None]
  - PULMONARY HYPERTENSION [None]
  - TACHYCARDIA [None]
  - WEIGHT DECREASED [None]
